FAERS Safety Report 22747913 (Version 2)
Quarter: 2023Q4

REPORT INFORMATION
  Report Type: Spontaneous
  Country: RU (occurrence: RU)
  Receive Date: 20230725
  Receipt Date: 20231017
  Transmission Date: 20240110
  Serious: No
  Sender: FDA-Public Use
  Company Number: RU-PFIZER INC-PV202300127319

PATIENT
  Age: 54 Year
  Sex: Male

DRUGS (1)
  1. SOMAVERT [Suspect]
     Active Substance: PEGVISOMANT
     Indication: Acromegaly
     Dosage: 10 MG
     Route: 058
     Dates: start: 202202, end: 202306

REACTIONS (1)
  - Lipohypertrophy [Unknown]

NARRATIVE: CASE EVENT DATE: 20230601
